FAERS Safety Report 22243528 (Version 6)
Quarter: 2023Q2

REPORT INFORMATION
  Report Type: Report from Study
  Country: CN (occurrence: None)
  Receive Date: 20230424
  Receipt Date: 20230606
  Transmission Date: 20230722
  Serious: Yes (Life-Threatening, Hospitalization)
  Sender: FDA-Public Use
  Company Number: CN-ROCHE-3333631

PATIENT
  Age: 65 Year
  Sex: Male
  Weight: 59 kg

DRUGS (17)
  1. ATEZOLIZUMAB [Suspect]
     Active Substance: ATEZOLIZUMAB
     Indication: Small cell lung cancer extensive stage
     Dosage: ON 23/MAR/2023 MOST RECENT DOSE OF ATEZOLIZUMAB WAS ADMINISTERED  PRIOR TO AE/SAE.?13/APR/2023: INTE
     Route: 041
     Dates: start: 20210602
  2. CISPLATIN [Suspect]
     Active Substance: CISPLATIN
     Indication: Small cell lung cancer extensive stage
     Dosage: ON 04/JUN/2021 MOST RECENT DOSE OF CISPLATIN WAS ADMINISTERED  PRIOR TO AE/SAE. THE MOST RECENT DOSE
     Route: 042
     Dates: start: 20210602
  3. ETOPOSIDE [Suspect]
     Active Substance: ETOPOSIDE
     Indication: Small cell lung cancer extensive stage
     Dosage: ON 04/JUN/2021 MOST RECENT DOSE OF ETOPOSIDE WAS ADMINISTERED  PRIOR TO AE/SAE, ON 08/AUG/2021,  HE
     Route: 042
     Dates: start: 20210603
  4. AMBROXOL HYDROCHLORIDE [Concomitant]
     Active Substance: AMBROXOL HYDROCHLORIDE
     Dates: start: 20210621
  5. CELECOXIB [Concomitant]
     Active Substance: CELECOXIB
     Dates: start: 20221216
  6. CELECOXIB [Concomitant]
     Active Substance: CELECOXIB
     Dates: start: 20230402, end: 20230413
  7. PHOSPHOLIPID [Concomitant]
     Active Substance: PHOSPHOLIPID
     Dates: start: 20230303
  8. PHOSPHOLIPID [Concomitant]
     Active Substance: PHOSPHOLIPID
     Dates: start: 20230323, end: 20230411
  9. PHOSPHOLIPID [Concomitant]
     Active Substance: PHOSPHOLIPID
     Dates: start: 20230412
  10. AMLODIPINE BESYLATE [Concomitant]
     Active Substance: AMLODIPINE BESYLATE
     Dates: start: 202104
  11. LORATADINE [Concomitant]
     Active Substance: LORATADINE
     Dates: start: 20210529
  12. CALAMINE + MENTHOL [Concomitant]
  13. BETAMETHASONE;UREA [Concomitant]
  14. FLURBIPROFEN [Concomitant]
     Active Substance: FLURBIPROFEN
  15. COMPOUND CODEINE PHOSPHATE AND IBUPROFEN [Concomitant]
  16. TIZANIDINE HYDROCHLORIDE [Concomitant]
     Active Substance: TIZANIDINE HYDROCHLORIDE
  17. ETORICOXIB [Concomitant]
     Active Substance: ETORICOXIB

REACTIONS (2)
  - Muscular weakness [Not Recovered/Not Resolved]
  - Pneumonia [Not Recovered/Not Resolved]

NARRATIVE: CASE EVENT DATE: 20230407
